FAERS Safety Report 25851255 (Version 1)
Quarter: 2025Q3

REPORT INFORMATION
  Report Type: Spontaneous
  Country: EU (occurrence: EU)
  Receive Date: 20250926
  Receipt Date: 20250926
  Transmission Date: 20251021
  Serious: Yes (Other)
  Sender: SAMSUNG BIOEPIS
  Company Number: EU-SAMSUNG BIOEPIS-SB-2025-32133

PATIENT
  Sex: Female

DRUGS (2)
  1. IMRALDI [Suspect]
     Active Substance: ADALIMUMAB
     Indication: Psoriasis
  2. IMRALDI [Suspect]
     Active Substance: ADALIMUMAB
     Indication: Enthesopathy

REACTIONS (4)
  - Shock [Unknown]
  - Pain [Unknown]
  - Product storage error [Unknown]
  - Off label use [Unknown]
